FAERS Safety Report 11290810 (Version 1)
Quarter: 2015Q3

REPORT INFORMATION
  Report Type: Spontaneous
  Country: US (occurrence: US)
  Receive Date: 20150722
  Receipt Date: 20150722
  Transmission Date: 20151125
  Serious: No
  Sender: FDA-Public Use
  Company Number: US-UNITED THERAPEUTICS-UNT-2015-004229

PATIENT
  Age: 49 Year
  Sex: Female
  Weight: 80.82 kg

DRUGS (3)
  1. TYVASO [Suspect]
     Active Substance: TREPROSTINIL
     Dosage: 18-54 ?G, QID
  2. TYVASO [Suspect]
     Active Substance: TREPROSTINIL
     Dosage: 18-72 ?G, QID
  3. TYVASO [Suspect]
     Active Substance: TREPROSTINIL
     Indication: PULMONARY HYPERTENSION
     Dosage: 18-72 ?G,QID
     Dates: start: 20150331

REACTIONS (7)
  - Neuropathy peripheral [Unknown]
  - Chest discomfort [Unknown]
  - Muscle spasms [Unknown]
  - Overdose [Unknown]
  - Paraesthesia [Unknown]
  - Hyperventilation [Unknown]
  - Hypoaesthesia [Unknown]

NARRATIVE: CASE EVENT DATE: 20150405
